FAERS Safety Report 6998800-7 (Version None)
Quarter: 2010Q3

REPORT INFORMATION
  Report Type: 
  Country: None (occurrence: None)
  Receive Date: 20100920
  Receipt Date: 20100907
  Transmission Date: 20110219
  Serious: Yes (Hospitalization)
  Sender: FDA-Public Use
  Company Number: US-ELI_LILLY_AND_COMPANY-US201006004318

PATIENT
  Sex: Female

DRUGS (15)
  1. FORTEO [Suspect]
     Indication: OSTEOPOROSIS
     Dosage: 20 UG, DAILY (1/D)
  2. FORTEO [Suspect]
     Dosage: 20 UG, DAILY (1/D)
  3. IMITREX [Concomitant]
     Dosage: 6 MG, AS NEEDED
  4. FAMOTIDINE [Concomitant]
     Dosage: 40 MG, 2/D
  5. OXYCONTIN [Concomitant]
     Indication: PAIN
     Dosage: 80 MG, AS NEEDED
  6. MORPHINE [Concomitant]
     Indication: PAIN
     Dosage: 20 MG, UNKNOWN
  7. SPIRONOLACTONE [Concomitant]
     Dosage: 50 MG, UNKNOWN
  8. HYDROCODONE [Concomitant]
     Indication: PAIN
     Dosage: UNK D/F, AS NEEDED
  9. IMITREX [Concomitant]
     Dosage: 100 MG, UNKNOWN
  10. DICYCLOMINE [Concomitant]
     Dosage: 10 MG, UNKNOWN
  11. PREDNISONE [Concomitant]
     Dosage: 20 MG, DAILY (1/D)
  12. METHOTREXATE [Concomitant]
     Dosage: 2.5 MG, WEEKLY (1/W)
  13. NORTRIPTYLINE HCL [Concomitant]
     Dosage: 50 MG, DAILY (1/D)
  14. PREMARIN [Concomitant]
     Dosage: 0.9 MG, DAILY (1/D)
  15. CYMBALTA [Concomitant]
     Dosage: 60 MG, DAILY (1/D)

REACTIONS (2)
  - HOSPITALISATION [None]
  - PANCREATITIS [None]
